FAERS Safety Report 9434827 (Version 2)
Quarter: 2013Q3

REPORT INFORMATION
  Report Type: Spontaneous
  Country: FR (occurrence: FR)
  Receive Date: 20130801
  Receipt Date: 20130925
  Transmission Date: 20140515
  Serious: Yes (Other)
  Sender: FDA-Public Use
  Company Number: FR-PFIZER INC-2013218148

PATIENT
  Age: 70 Year
  Sex: Female

DRUGS (3)
  1. AROMASINE [Suspect]
     Indication: BREAST CANCER
  2. HYDROCORTISONE [Concomitant]
     Indication: ADRENAL DISORDER
     Dosage: 30 MG, 1X/DAY
  3. PRAVASTATIN [Concomitant]
     Indication: BLOOD CHOLESTEROL
     Dosage: 20 MG, UNK

REACTIONS (4)
  - Cardiac failure [Unknown]
  - Asphyxia [Unknown]
  - Abdominal distension [Unknown]
  - Diarrhoea [Unknown]
